FAERS Safety Report 9644577 (Version 2)
Quarter: 2013Q4

REPORT INFORMATION
  Report Type: Spontaneous
  Country: US (occurrence: US)
  Receive Date: 20131025
  Receipt Date: 20131025
  Transmission Date: 20140711
  Serious: Yes (Other)
  Sender: FDA-Public Use
  Company Number: US-CELGENEUS-163-20785-13093912

PATIENT
  Age: 24 Year
  Sex: Female

DRUGS (5)
  1. THALOMID [Suspect]
     Indication: LICHEN PLANUS
     Dosage: 100 MILLIGRAM
     Route: 048
     Dates: start: 20101203
  2. THALOMID [Suspect]
     Dosage: 200 MILLIGRAM
     Route: 048
     Dates: start: 201105
  3. THALOMID [Suspect]
     Dosage: 100 MILLIGRAM
     Route: 048
     Dates: start: 201107, end: 201108
  4. HUMIRA [Concomitant]
     Indication: LICHEN PLANUS
     Dosage: 40 MILLIGRAM
     Route: 058
     Dates: start: 201011, end: 201110
  5. METHOTREXATE [Concomitant]
     Indication: LICHEN PLANUS
     Dosage: 12.5 MILLIGRAM
     Route: 030
     Dates: start: 201011, end: 201110

REACTIONS (2)
  - Squamous cell carcinoma of the oral cavity [Unknown]
  - Oesophageal stenosis [Not Recovered/Not Resolved]
